FAERS Safety Report 4991421-7 (Version None)
Quarter: 2006Q2

REPORT INFORMATION
  Report Type: 
  Country: None (occurrence: None)
  Receive Date: 20060502
  Receipt Date: 20060502
  Transmission Date: 20061013
  Serious: Yes (Death, Hospitalization)
  Sender: FDA-Public Use
  Company Number: None

PATIENT
  Sex: Male
  Weight: 88.9 kg

DRUGS (3)
  1. CYTARABINE [Suspect]
     Indication: ACUTE MYELOID LEUKAEMIA
     Dosage: 1470 MG
     Dates: start: 20060314, end: 20060320
  2. DAUNORUBICIN [Suspect]
     Dosage: 285 MG
     Dates: start: 20060314, end: 20060316
  3. GEMTUZUMAB OZOGAMICIN [Suspect]
     Dosage: 12.6 MG
     Dates: start: 20060318, end: 20060318

REACTIONS (7)
  - CANDIDIASIS [None]
  - CARDIO-RESPIRATORY ARREST [None]
  - CULTURE POSITIVE [None]
  - ENTEROCOCCAL INFECTION [None]
  - FEBRILE NEUTROPENIA [None]
  - LOSS OF CONSCIOUSNESS [None]
  - SKIN DISCOLOURATION [None]
